FAERS Safety Report 20076292 (Version 1)
Quarter: 2021Q4

REPORT INFORMATION
  Report Type: Spontaneous
  Country: US (occurrence: US)
  Receive Date: 20211116
  Receipt Date: 20211116
  Transmission Date: 20220303
  Serious: Yes (Other)
  Sender: FDA-Public Use
  Company Number: US-TOPROL-2021000250

PATIENT
  Age: 74 Year
  Sex: Male
  Weight: 132 kg

DRUGS (8)
  1. METOPROLOL SUCCINATE [Suspect]
     Active Substance: METOPROLOL SUCCINATE
     Route: 048
     Dates: start: 2017
  2. FARXIGA [Suspect]
     Active Substance: DAPAGLIFLOZIN PROPANEDIOL
     Route: 048
     Dates: start: 202106, end: 20211102
  3. METFORMIN [Concomitant]
     Active Substance: METFORMIN HYDROCHLORIDE
     Dates: start: 2019
  4. LORATADINE [Concomitant]
     Active Substance: LORATADINE
     Dosage: ONE TABLET TWICE EACH DAY.
     Route: 048
  5. EPLERENONE [Concomitant]
     Active Substance: EPLERENONE
     Dosage: 50 MG BY MOUTH ONCE EACH DAY. THE DOSE WAS INCREASED IN JUN-2021.
     Route: 048
  6. ELIQUIS [Concomitant]
     Active Substance: APIXABAN
     Route: 048
     Dates: start: 202108
  7. PANTOPRAZOLE SODIUM [Concomitant]
     Active Substance: PANTOPRAZOLE SODIUM
     Route: 048
     Dates: start: 202110
  8. GLIMEPIRIDE [Concomitant]
     Active Substance: GLIMEPIRIDE
     Dosage: SINCE MANY YEARS AGO.
     Route: 048

REACTIONS (11)
  - Atrial fibrillation [Not Recovered/Not Resolved]
  - Abdominal discomfort [Recovering/Resolving]
  - Abdominal pain upper [Recovering/Resolving]
  - Nausea [Recovering/Resolving]
  - Vomiting [Recovering/Resolving]
  - Pyrexia [Recovered/Resolved]
  - Chills [Recovered/Resolved]
  - Weight decreased [Unknown]
  - Body height decreased [Not Recovered/Not Resolved]
  - Protein urine present [Recovering/Resolving]
  - Product use issue [Not Recovered/Not Resolved]

NARRATIVE: CASE EVENT DATE: 20210601
